FAERS Safety Report 12555895 (Version 1)
Quarter: 2016Q3

REPORT INFORMATION
  Report Type: Other
  Country: TW (occurrence: TW)
  Receive Date: 20160714
  Receipt Date: 20160714
  Transmission Date: 20161109
  Serious: Yes (Hospitalization)
  Sender: FDA-Public Use
  Company Number: TW-JUBILANT GENERICS LIMITED-1055043

PATIENT
  Age: 62 Year
  Sex: Male

DRUGS (4)
  1. ESTAZOLAM. [Suspect]
     Active Substance: ESTAZOLAM
  2. BENZHEXOL HYDROCHLORIDE [Suspect]
     Active Substance: TRIHEXYPHENIDYL HYDROCHLORIDE
  3. OLANZAPINE. [Suspect]
     Active Substance: OLANZAPINE
  4. VALPROATE [Suspect]
     Active Substance: VALPROIC ACID

REACTIONS (2)
  - Paralysis [Recovered/Resolved]
  - Rhabdomyolysis [Recovered/Resolved]

NARRATIVE: CASE EVENT DATE: 20160628
